FAERS Safety Report 15697102 (Version 13)
Quarter: 2021Q1

REPORT INFORMATION
  Report Type: Spontaneous
  Country: US (occurrence: US)
  Receive Date: 20181206
  Receipt Date: 20210105
  Transmission Date: 20210419
  Serious: Yes (Other)
  Sender: FDA-Public Use
  Company Number: US-PFIZER INC-2018497307

PATIENT
  Age: 75 Year
  Sex: Female
  Weight: 60 kg

DRUGS (2)
  1. LYRICA [Suspect]
     Active Substance: PREGABALIN
     Dosage: UNK
  2. LYRICA [Suspect]
     Active Substance: PREGABALIN
     Indication: HERPES ZOSTER
     Dosage: 75 MG, (TWO TO THREE TIMES A DAY)
     Route: 048
     Dates: start: 201802, end: 201810

REACTIONS (14)
  - Blood pressure increased [Unknown]
  - Foot fracture [Unknown]
  - Anxiety [Unknown]
  - Varicella [Unknown]
  - Malaise [Unknown]
  - Hypoacusis [Unknown]
  - Nervousness [Unknown]
  - Irritability [Unknown]
  - Intentional product use issue [Unknown]
  - Tinnitus [Unknown]
  - Emotional disorder [Unknown]
  - Confusional state [Unknown]
  - Feeling abnormal [Unknown]
  - Abnormal dreams [Unknown]

NARRATIVE: CASE EVENT DATE: 2018
